FAERS Safety Report 6721948-9 (Version None)
Quarter: 2010Q2

REPORT INFORMATION
  Report Type: 
  Country: None (occurrence: None)
  Receive Date: 20100512
  Receipt Date: 20100503
  Transmission Date: 20101027
  Serious: Yes (Life-Threatening, Hospitalization, Disabling, Other)
  Sender: FDA-Public Use
  Company Number: A0844493A

PATIENT
  Age: 38 Year
  Sex: Female
  Weight: 74.5 kg

DRUGS (7)
  1. TYKERB [Suspect]
     Indication: BREAST CANCER
     Dosage: 1250MG PER DAY
     Route: 048
     Dates: start: 20100212, end: 20100228
  2. HERCEPTIN [Concomitant]
     Dates: start: 20100212
  3. OXYCODONE WITH TYLENOL [Concomitant]
     Indication: PAIN
     Route: 048
  4. PRILOSEC [Concomitant]
     Indication: ILL-DEFINED DISORDER
     Dosage: 20MG PER DAY
     Route: 048
  5. TAMOXIFEN CITRATE [Concomitant]
     Dosage: 20MG PER DAY
     Route: 048
  6. ZOLOFT [Concomitant]
     Indication: DEPRESSION
     Dosage: 50MG PER DAY
     Route: 048
  7. KLONOPIN [Concomitant]
     Indication: PAIN
     Dosage: .5MG AS REQUIRED
     Route: 048

REACTIONS (6)
  - COUGH [None]
  - DYSPNOEA [None]
  - INTERSTITIAL LUNG DISEASE [None]
  - NAIL DISCOLOURATION [None]
  - RESPIRATORY FAILURE [None]
  - SKIN DISCOLOURATION [None]
